FAERS Safety Report 23171763 (Version 1)
Quarter: 2023Q4

REPORT INFORMATION
  Report Type: Spontaneous
  Country: ES (occurrence: ES)
  Receive Date: 20231110
  Receipt Date: 20231110
  Transmission Date: 20240110
  Serious: Yes (Other)
  Sender: FDA-Public Use
  Company Number: ES-UCBSA-2023050699

PATIENT
  Age: 5 Year
  Sex: Male

DRUGS (3)
  1. LEVETIRACETAM [Suspect]
     Active Substance: LEVETIRACETAM
     Indication: Lennox-Gastaut syndrome
     Dosage: UNK
     Route: 065
  2. VALPROIC ACID [Suspect]
     Active Substance: VALPROIC ACID
     Indication: Lennox-Gastaut syndrome
     Dosage: 46 MILLIGRAM/KILOGRAM, QD
     Route: 065
  3. CLOBAZAM [Suspect]
     Active Substance: CLOBAZAM
     Indication: Lennox-Gastaut syndrome
     Dosage: UNK
     Route: 065

REACTIONS (13)
  - Generalised tonic-clonic seizure [Recovering/Resolving]
  - Dysarthria [Unknown]
  - Cognitive disorder [Unknown]
  - Motor dysfunction [Recovering/Resolving]
  - Hyperphagia [Unknown]
  - Akathisia [Unknown]
  - Impulsive behaviour [Unknown]
  - Behaviour disorder [Recovering/Resolving]
  - Disturbance in attention [Unknown]
  - Somnolence [Recovered/Resolved]
  - Irritability [Unknown]
  - Ataxia [Unknown]
  - Off label use [Unknown]
